FAERS Safety Report 9270434 (Version 1)
Quarter: 2013Q2

REPORT INFORMATION
  Report Type: Spontaneous
  Country: JP (occurrence: JP)
  Receive Date: 20130503
  Receipt Date: 20130503
  Transmission Date: 20140414
  Serious: Yes (Other)
  Sender: FDA-Public Use
  Company Number: JP-TEVA-402486ISR

PATIENT
  Sex: 0

DRUGS (2)
  1. DIAZEPAM [Suspect]
     Indication: ANAESTHESIA
     Route: 042
  2. FENTANYL [Suspect]
     Indication: ANAESTHESIA
     Route: 042

REACTIONS (1)
  - Foetal death [Unknown]
